FAERS Safety Report 9464016 (Version 2)
Quarter: 2013Q3

REPORT INFORMATION
  Report Type: Spontaneous
  Country: US (occurrence: US)
  Receive Date: 20130819
  Receipt Date: 20130819
  Transmission Date: 20140515
  Serious: No
  Sender: FDA-Public Use
  Company Number: US-BRISTOL-MYERS SQUIBB COMPANY-18862789

PATIENT
  Age: 55 Year
  Sex: Male

DRUGS (5)
  1. REYATAZ [Suspect]
     Indication: HIV INFECTION
     Route: 048
     Dates: start: 200304, end: 20130409
  2. EPZICOM [Suspect]
  3. ISENTRESS [Suspect]
  4. XANAX [Concomitant]
  5. DOXAZOSIN [Concomitant]

REACTIONS (1)
  - Nephrolithiasis [Recovered/Resolved]
